FAERS Safety Report 9735555 (Version 2)
Quarter: 2014Q1

REPORT INFORMATION
  Report Type: Report from Study
  Country: DE (occurrence: DE)
  Receive Date: 20131206
  Receipt Date: 20140123
  Transmission Date: 20141002
  Serious: Yes (Hospitalization)
  Sender: FDA-Public Use
  Company Number: DE-US-EMD SERONO, INC.-7252613

PATIENT
  Sex: Female
  Weight: 10 kg

DRUGS (4)
  1. SAIZEN [Suspect]
     Indication: GROWTH HORMONE DEFICIENCY
     Route: 058
     Dates: start: 20120629
  2. SAIZEN [Suspect]
     Route: 058
     Dates: start: 20121024
  3. SAIZEN [Suspect]
     Route: 058
     Dates: start: 20130415
  4. L-THYROXIN [Concomitant]
     Indication: HYPOTHYROIDISM

REACTIONS (3)
  - Hypophagia [Recovered/Resolved]
  - Hypoglycaemia [Recovered/Resolved]
  - Fluid intake reduced [Recovered/Resolved]
